FAERS Safety Report 18985675 (Version 1)
Quarter: 2021Q1

REPORT INFORMATION
  Report Type: Report from Study
  Country: BR (occurrence: BR)
  Receive Date: 20210309
  Receipt Date: 20210309
  Transmission Date: 20210420
  Serious: Yes (Other)
  Sender: FDA-Public Use
  Company Number: NVSC2021BR048569

PATIENT
  Age: 80 Year
  Sex: Female

DRUGS (3)
  1. KISQALI [Suspect]
     Active Substance: RIBOCICLIB
     Indication: BREAST CANCER METASTATIC
     Dosage: 600 MG, QD
     Route: 065
     Dates: start: 20210201, end: 20210215
  2. FULVESTRANT. [Suspect]
     Active Substance: FULVESTRANT
     Indication: PRODUCT USED FOR UNKNOWN INDICATION
     Dosage: 250 UNK, QMO (DID NOT REMEMBER THE UNIT OF MEASURE)
     Route: 030
     Dates: start: 2009, end: 202006
  3. FULVESTRANT. [Suspect]
     Active Substance: FULVESTRANT
     Dosage: UNK, QMO (2 AMPOULES)
     Route: 030
     Dates: end: 202012

REACTIONS (17)
  - Platelet count decreased [Not Recovered/Not Resolved]
  - Decreased appetite [Recovering/Resolving]
  - Infarction [Unknown]
  - Illness [Recovered/Resolved]
  - Fear [Unknown]
  - Stress [Unknown]
  - Back pain [Unknown]
  - Emotional disorder [Unknown]
  - Diarrhoea [Recovering/Resolving]
  - Rhinitis [Recovered/Resolved]
  - Ageusia [Recovering/Resolving]
  - Nausea [Recovered/Resolved]
  - Dizziness [Recovered/Resolved]
  - Rhinitis allergic [Unknown]
  - Fatigue [Unknown]
  - Haemoglobin decreased [Not Recovered/Not Resolved]
  - Hypotension [Recovered/Resolved]

NARRATIVE: CASE EVENT DATE: 20210201
